FAERS Safety Report 4432767-0 (Version None)
Quarter: 2004Q3

REPORT INFORMATION
  Report Type: 
  Country: None (occurrence: None)
  Receive Date: 20040823
  Receipt Date: 20040811
  Transmission Date: 20050211
  Serious: Yes (Other)
  Sender: FDA-Public Use
  Company Number: FLUV00304000272

PATIENT
  Age: 51 Year
  Sex: Male

DRUGS (7)
  1. FLUVOXAMINE MALEATE [Suspect]
     Indication: PSYCHOSOMATIC DISEASE
     Dosage: 50 MG DAILY PO
     Route: 048
     Dates: start: 20031227, end: 20040123
  2. NEUROVITAN (VITAMINES) [Concomitant]
  3. METHYLCOBAL (MECOBALAMIN) [Concomitant]
  4. LOXONIN (LOXOPROFEN SODIUM) [Concomitant]
  5. SELBEX (TEPRENONE) [Concomitant]
  6. GLYBURIDE [Concomitant]
  7. KINEDAK(EPALRESTAT) [Concomitant]

REACTIONS (3)
  - DIPLOPIA [None]
  - TOLOSA-HUNT SYNDROME [None]
  - VISUAL ACUITY REDUCED [None]
